FAERS Safety Report 16020271 (Version 1)
Quarter: 2019Q1

REPORT INFORMATION
  Report Type: Report from Study
  Country: None (occurrence: CA)
  Receive Date: 20190228
  Receipt Date: 20190228
  Transmission Date: 20190418
  Serious: Yes (Hospitalization)
  Sender: FDA-Public Use
  Company Number: CA-ABBVIE-19S-028-2685169-00

PATIENT
  Age: 76 Year
  Sex: Male

DRUGS (1)
  1. LUPRON DEPOT [Suspect]
     Active Substance: LEUPROLIDE ACETATE
     Indication: PROSTATE CANCER
     Route: 030
     Dates: start: 20180823

REACTIONS (2)
  - Urinary bladder haemorrhage [Unknown]
  - Sepsis [Unknown]

NARRATIVE: CASE EVENT DATE: 201902
